FAERS Safety Report 10776211 (Version 2)
Quarter: 2015Q1

REPORT INFORMATION
  Report Type: Spontaneous
  Country: US (occurrence: US)
  Receive Date: 20150209
  Receipt Date: 20150305
  Transmission Date: 20150721
  Serious: Yes (Other)
  Sender: FDA-Public Use
  Company Number: US-PFIZER INC-2015050966

PATIENT
  Sex: Male

DRUGS (11)
  1. ADVIL [Suspect]
     Active Substance: IBUPROFEN
     Indication: ARTHRALGIA
  2. ZYVOX [Concomitant]
     Active Substance: LINEZOLID
  3. CELEBREX [Suspect]
     Active Substance: CELECOXIB
     Indication: ARTHRALGIA
     Dosage: 300 MG, 1X/DAY
  4. CELEBREX [Suspect]
     Active Substance: CELECOXIB
     Indication: SCIATICA
  5. TRICOR [Concomitant]
     Active Substance: FENOFIBRATE
     Dosage: UNK
  6. CELEBREX [Suspect]
     Active Substance: CELECOXIB
     Indication: NEURALGIA
  7. ADVIL [Suspect]
     Active Substance: IBUPROFEN
     Indication: PAIN IN EXTREMITY
     Dosage: 300 MG, 1X/DAY
  8. LIPITOR [Concomitant]
     Active Substance: ATORVASTATIN CALCIUM
     Dosage: UNK
  9. ADVIL [Suspect]
     Active Substance: IBUPROFEN
     Indication: SCIATICA
  10. LABETALOL [Concomitant]
     Active Substance: LABETALOL\LABETALOL HYDROCHLORIDE
     Indication: MYALGIA
     Dosage: UNK
  11. TYLENOL [Concomitant]
     Active Substance: ACETAMINOPHEN
     Dosage: UNK

REACTIONS (2)
  - Haemorrhage [Unknown]
  - Renal failure [Unknown]
